FAERS Safety Report 11916778 (Version 2)
Quarter: 2022Q3

REPORT INFORMATION
  Report Type: Report from Study
  Country: US (occurrence: US)
  Receive Date: 20160114
  Receipt Date: 20220718
  Transmission Date: 20221027
  Serious: Yes (Other)
  Sender: FDA-Public Use
  Company Number: US-AMGEN-USASL2016002460

PATIENT
  Age: 34 Year
  Sex: Female

DRUGS (10)
  1. ENBREL [Suspect]
     Active Substance: ETANERCEPT
     Indication: Psoriatic arthropathy
     Dosage: 50 MILLIGRAM, QWK
     Route: 065
     Dates: end: 2015
  2. ENBREL [Suspect]
     Active Substance: ETANERCEPT
     Dosage: 50 MILLIGRAM, QWK
     Route: 065
  3. ENBREL [Suspect]
     Active Substance: ETANERCEPT
     Dosage: 50 MILLIGRAM, QWK
     Route: 065
  4. ENBREL [Suspect]
     Active Substance: ETANERCEPT
     Dosage: 50 MILLIGRAM, QWK
     Route: 065
  5. ENBREL [Suspect]
     Active Substance: ETANERCEPT
     Dosage: 50 MILLIGRAM, QWK
     Route: 065
  6. ENBREL [Suspect]
     Active Substance: ETANERCEPT
     Dosage: 50 MILLIGRAM, QWK
     Route: 065
  7. COVID-19 vaccine [Concomitant]
     Indication: COVID-19 immunisation
     Dosage: UNK
     Route: 065
  8. COVID-19 vaccine [Concomitant]
     Dosage: UNK
     Route: 065
  9. COVID-19 vaccine [Concomitant]
     Dosage: UNK
     Route: 065
  10. COVID-19 vaccine [Concomitant]
     Dosage: UNK
     Route: 065

REACTIONS (3)
  - Pneumonia [Unknown]
  - Nasopharyngitis [Unknown]
  - Bronchitis [Unknown]

NARRATIVE: CASE EVENT DATE: 20151125
